FAERS Safety Report 8704833 (Version 2)
Quarter: 2012Q4

REPORT INFORMATION
  Report Type: 
  Country: FR (occurrence: FR)
  Receive Date: 20120803
  Receipt Date: 20121121
  Transmission Date: 20130627
  Serious: Yes (Disabling, Other)
  Sender: FDA-Public Use
  Company Number: FR-ASTRAZENECA-2012SE53158

PATIENT
  Age: 898 Month
  Sex: Male

DRUGS (10)
  1. CRESTOR [Suspect]
     Indication: DYSLIPIDAEMIA
     Route: 048
     Dates: start: 200812, end: 20120625
  2. SYMBICORT [Concomitant]
     Dosage: ON UNKNOWN FREQUENCY
     Route: 055
  3. ISOPTINE [Concomitant]
  4. DISCOTRINE [Concomitant]
  5. IKOREL [Concomitant]
  6. KARDEGIC [Concomitant]
  7. EUPANTHOL [Concomitant]
  8. THEOSTAT [Concomitant]
  9. DAFALGAN [Concomitant]
  10. BRONCHODUAL [Concomitant]

REACTIONS (2)
  - Tendonitis [Not Recovered/Not Resolved]
  - Tendon rupture [Recovered/Resolved with Sequelae]
